FAERS Safety Report 8766494 (Version 1)
Quarter: 2012Q4

REPORT INFORMATION
  Report Type: 
  Country: FR (occurrence: FR)
  Receive Date: 20120904
  Receipt Date: 20120904
  Transmission Date: 20130627
  Serious: Yes (Hospitalization)
  Sender: FDA-Public Use
  Company Number: FR-AMGEN-FRASP2012054868

PATIENT
  Age: 67 Year
  Sex: Female

DRUGS (6)
  1. NEUPOGEN [Suspect]
     Indication: PRODUCT USED FOR UNKNOWN INDICATION
     Dosage: 60 mU/L, qwk
  2. VICTRELIS [Suspect]
     Indication: HEPATITIS C
     Dosage: 2400 mg, qd
     Route: 048
     Dates: start: 20111010, end: 20120521
  3. COPEGUS [Suspect]
     Dosage: 600 mg, qd
  4. PEGASYS [Suspect]
     Dosage: 135 mug, qwk
  5. REVOLADE [Suspect]
     Dosage: 50 mg, qd
     Dates: end: 20120521
  6. NEORECORMON [Suspect]
     Dosage: 60000 U/L, qwk

REACTIONS (2)
  - Oedema peripheral [Recovered/Resolved]
  - Pulmonary hypertension [Recovered/Resolved]
